FAERS Safety Report 10258175 (Version 2)
Quarter: 2014Q3

REPORT INFORMATION
  Report Type: Spontaneous
  Country: JP (occurrence: JP)
  Receive Date: 20140625
  Receipt Date: 20140715
  Transmission Date: 20150326
  Serious: Yes (Hospitalization)
  Sender: FDA-Public Use
  Company Number: JP-ASTRAZENECA-2014SE45251

PATIENT
  Age: 61 Year
  Sex: Male

DRUGS (1)
  1. OMEPRAL [Suspect]
     Active Substance: OMEPRAZOLE
     Route: 048

REACTIONS (1)
  - Inappropriate antidiuretic hormone secretion [Recovered/Resolved]
